FAERS Safety Report 9061744 (Version 1)
Quarter: 2013Q1

REPORT INFORMATION
  Report Type: Spontaneous
  Country: US (occurrence: None)
  Receive Date: 20130122
  Receipt Date: 20130122
  Transmission Date: 20140127
  Serious: Yes (Death)
  Sender: FDA-Public Use
  Company Number: UTC-027980

PATIENT
  Age: 41 Year
  Sex: Female
  Weight: 66.7 kg

DRUGS (4)
  1. REMODULIN (5 MILLIGRAM/MILLILITERS, INJECTION FOR [Suspect]
     Indication: PULMONARY ARTERIAL HYPERTENSION
     Dosage: 50.4  UG/KG  (0.035 UG/KG, 1 IN 1 MIN), SUBCUTANEOUS?12/20/2011 ONGOING
     Route: 058
     Dates: start: 20111220
  2. ADCIRCA (TADALAFIL) [Concomitant]
  3. COUMADIN (WARFARIN SODIUM) [Concomitant]
  4. LETAIRIS (AMBRISENTAN) [Concomitant]

REACTIONS (1)
  - Death [None]
